FAERS Safety Report 13251276 (Version 1)
Quarter: 2017Q1

REPORT INFORMATION
  Report Type: Spontaneous
  Country: US (occurrence: US)
  Receive Date: 20170220
  Receipt Date: 20170220
  Transmission Date: 20170428
  Serious: Yes (Hospitalization, Other)
  Sender: FDA-Public Use
  Company Number: US-AMGEN-USASP2017024594

PATIENT
  Age: 68 Year
  Sex: Male
  Weight: 105.13 kg

DRUGS (27)
  1. PROVENGE [Suspect]
     Active Substance: SIPULEUCEL-T
     Indication: MALIGNANT NEOPLASM PROGRESSION
  2. PHENAZOPYRIDINE. [Concomitant]
     Active Substance: PHENAZOPYRIDINE
     Dosage: 200 MG, BID
     Route: 048
  3. RITALIN [Concomitant]
     Active Substance: METHYLPHENIDATE HYDROCHLORIDE
     Dosage: 1 DF, BID
     Route: 048
     Dates: start: 20170116
  4. LUPRON [Suspect]
     Active Substance: LEUPROLIDE ACETATE
     Dosage: UNK
     Route: 065
     Dates: start: 201509, end: 20151231
  5. XTANDI [Suspect]
     Active Substance: ENZALUTAMIDE
     Indication: PROSTATE CANCER METASTATIC
     Dosage: UNK
     Route: 065
     Dates: start: 201404, end: 201504
  6. JEVTANA [Suspect]
     Active Substance: CABAZITAXEL
     Indication: PROSTATE CANCER METASTATIC
     Dosage: UNK UNK, Q3WK
     Route: 065
     Dates: start: 20161117
  7. CASODEX [Suspect]
     Active Substance: BICALUTAMIDE
     Indication: PROSTATE CANCER METASTATIC
     Dosage: UNK
     Route: 065
     Dates: start: 2012
  8. PREDNISONE. [Suspect]
     Active Substance: PREDNISONE
     Dosage: 1 DF, QD
     Route: 048
     Dates: start: 20160516
  9. FLOMAX [Concomitant]
     Active Substance: TAMSULOSIN HYDROCHLORIDE
     Dosage: 1 DF, QD
     Route: 048
     Dates: start: 20160913
  10. XGEVA [Suspect]
     Active Substance: DENOSUMAB
     Indication: PROSTATE CANCER
     Dosage: UNK UNK, QMO
     Route: 065
     Dates: start: 20150506
  11. PROVENGE [Suspect]
     Active Substance: SIPULEUCEL-T
     Indication: PROSTATE CANCER METASTATIC
     Dosage: UNK
     Route: 065
     Dates: start: 20150921
  12. ZYTIGA [Suspect]
     Active Substance: ABIRATERONE ACETATE
     Indication: MALIGNANT NEOPLASM PROGRESSION
  13. TAXOTERE [Suspect]
     Active Substance: DOCETAXEL
     Indication: PROSTATE CANCER METASTATIC
     Dosage: UNK
     Route: 065
     Dates: start: 20151231
  14. NEULASTA [Suspect]
     Active Substance: PEGFILGRASTIM
     Indication: PRODUCT USED FOR UNKNOWN INDICATION
     Dosage: UNK
     Route: 065
  15. ZYTIGA [Suspect]
     Active Substance: ABIRATERONE ACETATE
     Indication: PROSTATE CANCER METASTATIC
     Dosage: UNK
     Route: 065
     Dates: start: 20150430, end: 20150813
  16. PREDNISONE. [Suspect]
     Active Substance: PREDNISONE
     Indication: MALIGNANT NEOPLASM PROGRESSION
     Dosage: 1 DF, QD
     Route: 048
     Dates: start: 20150430, end: 20150813
  17. VITAMIN C [Concomitant]
     Active Substance: ASCORBIC ACID
     Dosage: 500 MG, QD
     Route: 048
  18. MIRTAZAPINE. [Concomitant]
     Active Substance: MIRTAZAPINE
     Dosage: 15 MG, QD BEFORE SLEEP
     Route: 048
     Dates: start: 20170118
  19. AMBIEN CR [Concomitant]
     Active Substance: ZOLPIDEM TARTRATE
     Dosage: 1 DF, QD, EVERY NIGHT BEFORE SLEEP
     Route: 048
     Dates: start: 20170103
  20. LUPRON [Suspect]
     Active Substance: LEUPROLIDE ACETATE
     Indication: PROSTATE CANCER METASTATIC
     Dosage: UNK
     Route: 065
     Dates: start: 2012
  21. FIRMAGON [Suspect]
     Active Substance: DEGARELIX ACETATE
     Indication: PROSTATE CANCER METASTATIC
     Dosage: UNK UNK, QMO
     Route: 065
     Dates: start: 20151231
  22. TAXOTERE [Suspect]
     Active Substance: DOCETAXEL
     Indication: MALIGNANT NEOPLASM PROGRESSION
  23. TRAZODONE [Concomitant]
     Active Substance: TRAZODONE HYDROCHLORIDE
     Dosage: 50 MG, QD BEFORE SLEEP
     Route: 048
  24. XGEVA [Suspect]
     Active Substance: DENOSUMAB
     Indication: MALIGNANT NEOPLASM PROGRESSION
  25. PREDNISONE. [Suspect]
     Active Substance: PREDNISONE
     Dosage: 1 DF, QD
     Route: 048
     Dates: start: 20151231
  26. JEVTANA [Suspect]
     Active Substance: CABAZITAXEL
     Indication: MALIGNANT NEOPLASM PROGRESSION
     Dosage: UNK, Q3WK
     Route: 065
     Dates: start: 20170105
  27. AMBIEN [Concomitant]
     Active Substance: ZOLPIDEM TARTRATE
     Dosage: 10 MG, QD, BEFORE SLEEP
     Route: 048
     Dates: start: 20170109

REACTIONS (19)
  - Retroperitoneal lymphadenopathy [Unknown]
  - Lipoma [Unknown]
  - Haemoglobin decreased [Unknown]
  - Red blood cell count decreased [Unknown]
  - Bladder disorder [Unknown]
  - Urinary tract infection [Unknown]
  - Lymphadenopathy [Unknown]
  - Blood calcium decreased [Unknown]
  - Arthralgia [Unknown]
  - Febrile neutropenia [Unknown]
  - Bladder obstruction [Unknown]
  - Hyperglycaemia [Unknown]
  - Dehydration [Unknown]
  - Bone lesion [Unknown]
  - Haematocrit decreased [Unknown]
  - Prostatic specific antigen decreased [Unknown]
  - Blood pressure abnormal [Unknown]
  - Malignant neoplasm progression [Unknown]
  - Metastases to bone [Unknown]

NARRATIVE: CASE EVENT DATE: 20120912
